FAERS Safety Report 23831990 (Version 3)
Quarter: 2024Q4

REPORT INFORMATION
  Report Type: Report from Study
  Country: US (occurrence: US)
  Receive Date: 20240508
  Receipt Date: 20241106
  Transmission Date: 20250115
  Serious: Yes (Hospitalization, Other)
  Sender: BAXTER
  Company Number: US-BAXTER-2024BAX017850

PATIENT
  Age: 51 Year
  Sex: Female
  Weight: 89.7 kg

DRUGS (11)
  1. MESNA [Suspect]
     Active Substance: MESNA
     Dosage: 300 MG/M2, SCHEDULE: DAYS 1-3. CYCLE: 1, 3, 5, 7
     Route: 065
  2. CYCLOPHOSPHAMIDE [Suspect]
     Active Substance: CYCLOPHOSPHAMIDE
     Dosage: 150 MG/M2, SCHEDULE: EVERY 12 HRS X 6 DOSES, DAYS 1-3. CYCLE: 1, 3, 5, 7
     Route: 065
     Dates: start: 20231106, end: 20231109
  3. INOTUZUMAB OZOGAMICIN [Suspect]
     Active Substance: INOTUZUMAB OZOGAMICIN
     Dosage: CYCLE 1: TOTAL 0.9 MG/M2. CYCLES 2-4: TOTAL 0.6 MG/M2. SCHEDULE: CYCLE 1: 0.6 MG/M2 D2, 0.3 MG/M2 D8
     Route: 042
     Dates: start: 20231107, end: 20231206
  4. METHOTREXATE SODIUM [Suspect]
     Active Substance: METHOTREXATE SODIUM
     Dosage: 250 MG/M2, CYCLE: 2, 4, 6, 8. DOSE: 250 MG/M2. SCHEDULE: DAY 1
     Route: 042
     Dates: start: 20231129, end: 20231206
  5. METHOTREXATE SODIUM [Suspect]
     Active Substance: METHOTREXATE SODIUM
     Dosage: 12 MG. SCHEDULE: DAY 2, DAY 8. CYCLE: 1-4
     Route: 037
  6. RITUXIMAB [Suspect]
     Active Substance: RITUXIMAB
     Dosage: 375 MG/M2, SCHEDULE: DAY 2, DAY 8. CYCLE: 1-4
     Route: 042
     Dates: start: 20231107, end: 20231107
  7. VINCRISTINE SULFATE [Suspect]
     Active Substance: VINCRISTINE SULFATE
     Dosage: 2 MG, SCHEDULE: DAY 1, DAY 8. CYCLE: 1, 3, 5, 7
     Route: 042
     Dates: start: 20231106, end: 20231113
  8. CYTARABINE [Suspect]
     Active Substance: CYTARABINE
     Dosage: CYCLE: 2, 4, 6, 8. DOSE: 0.5 G/M2/DOSE. SCHEDULE: EVERY 12 HRS X 4 DOSES, DAYS 2, 3
     Route: 042
     Dates: start: 20231130, end: 20231202
  9. CYTARABINE [Suspect]
     Active Substance: CYTARABINE
     Dosage: 100 MG, SCHEDULE: DAY 2, DAY
     Route: 037
  10. DEXAMETHASONE [Suspect]
     Active Substance: DEXAMETHASONE
     Dosage: 20 MG, SCHEDULE: DAYS 1-4, DAYS 11-14. CYCLE: 1, 3, 5, 7
     Route: 065
     Dates: start: 20231106, end: 20231119
  11. METHYLPREDNISOLONE SODIUM SUCCINATE [Suspect]
     Active Substance: METHYLPREDNISOLONE SODIUM SUCCINATE
     Dosage: 50 MG, SCHEDULE: EVERY 12 HRS X 6 DOSES, DAYS 1- 3. CYCLE: 2, 4, 6, 8
     Route: 042

REACTIONS (3)
  - Febrile neutropenia [Recovered/Resolved]
  - Sepsis [Recovered/Resolved]
  - Skin infection [Recovered/Resolved]

NARRATIVE: CASE EVENT DATE: 20231210
